FAERS Safety Report 19580968 (Version 1)
Quarter: 2021Q3

REPORT INFORMATION
  Report Type: Spontaneous
  Country: US (occurrence: US)
  Receive Date: 20210719
  Receipt Date: 20210719
  Transmission Date: 20211014
  Serious: Yes (Life-Threatening)
  Sender: FDA-Public Use
  Company Number: None

PATIENT
  Age: 45 Year
  Sex: Male
  Weight: 85.05 kg

DRUGS (12)
  1. GEODON [Concomitant]
     Active Substance: ZIPRASIDONE HYDROCHLORIDE\ZIPRASIDONE MESYLATE
  2. VITAMIN D [Concomitant]
     Active Substance: VITAMIN D NOS
  3. TESTBOOST [Concomitant]
  4. ATOMOXETINE. [Concomitant]
     Active Substance: ATOMOXETINE HYDROCHLORIDE
  5. ALPRAZOLAM. [Concomitant]
     Active Substance: ALPRAZOLAM
  6. PRAZOSIN. [Concomitant]
     Active Substance: PRAZOSIN
  7. COD LIVER OIL [Concomitant]
     Active Substance: COD LIVER OIL
  8. OMEPRAZOLE. [Concomitant]
     Active Substance: OMEPRAZOLE
  9. TRAZODONE [Concomitant]
     Active Substance: TRAZODONE HYDROCHLORIDE
  10. REDWOOD POLLEN [Concomitant]
     Active Substance: SEQUOIA SEMPERVIRENS POLLEN
  11. TRIAZOLAM. [Suspect]
     Active Substance: TRIAZOLAM
     Indication: INSOMNIA
     Dosage: ?          QUANTITY:2 TABLET(S);?
     Route: 048
     Dates: start: 20210624, end: 20210706
  12. DEPAKOTE [Concomitant]
     Active Substance: DIVALPROEX SODIUM

REACTIONS (3)
  - Homicidal ideation [None]
  - Suicidal ideation [None]
  - Violence-related symptom [None]

NARRATIVE: CASE EVENT DATE: 20210706
